FAERS Safety Report 4284344-2 (Version None)
Quarter: 2004Q1

REPORT INFORMATION
  Report Type: 
  Country: None (occurrence: None)
  Receive Date: 20040202
  Receipt Date: 20040202
  Transmission Date: 20041129
  Serious: Yes (Other)
  Sender: FDA-Public Use
  Company Number: None

PATIENT
  Age: 52 Year
  Sex: Male
  Weight: 83.4 kg

DRUGS (9)
  1. VELCADE [Suspect]
     Indication: MULTIPLE MYELOMA
     Dosage: 2.6 MG IV
     Route: 042
     Dates: start: 20040121, end: 20040124
  2. VIOXX [Concomitant]
  3. CELEXA [Concomitant]
  4. NORVASC [Concomitant]
  5. NEURONTIN [Concomitant]
  6. FLONASE [Concomitant]
  7. OXYCONTIN [Concomitant]
  8. PREVACID [Concomitant]
  9. SENOKOT [Concomitant]

REACTIONS (3)
  - DRUG TOXICITY [None]
  - ERYTHEMA [None]
  - VEIN DISORDER [None]
